FAERS Safety Report 13470361 (Version 2)
Quarter: 2018Q1

REPORT INFORMATION
  Report Type: Spontaneous
  Country: US (occurrence: US)
  Receive Date: 20170423
  Receipt Date: 20180111
  Transmission Date: 20180508
  Serious: No
  Sender: FDA-Public Use
  Company Number: US-JNJFOC-20170422015

PATIENT
  Sex: Male

DRUGS (11)
  1. RISPERDAL [Suspect]
     Active Substance: RISPERIDONE
     Indication: SCHIZOAFFECTIVE DISORDER
     Dosage: 01 TO 03 MG
     Route: 048
     Dates: start: 20050429, end: 20060706
  2. DEPAKOTE [Suspect]
     Active Substance: DIVALPROEX SODIUM
     Indication: PRODUCT USED FOR UNKNOWN INDICATION
     Route: 048
  3. RISPERDAL [Suspect]
     Active Substance: RISPERIDONE
     Indication: DEPRESSION
     Dosage: 01 TO 03 MG
     Route: 048
     Dates: start: 20050429, end: 20060706
  4. RISPERDAL [Suspect]
     Active Substance: RISPERIDONE
     Indication: SCHIZOAFFECTIVE DISORDER
     Route: 048
     Dates: start: 20140429, end: 20140703
  5. ZOLOFT [Suspect]
     Active Substance: SERTRALINE HYDROCHLORIDE
     Indication: PRODUCT USED FOR UNKNOWN INDICATION
     Route: 048
  6. REMERON [Suspect]
     Active Substance: MIRTAZAPINE
     Indication: PRODUCT USED FOR UNKNOWN INDICATION
     Route: 048
  7. RISPERDAL [Suspect]
     Active Substance: RISPERIDONE
     Indication: SCHIZOAFFECTIVE DISORDER
     Route: 048
     Dates: start: 2014, end: 20150506
  8. RISPERDAL [Suspect]
     Active Substance: RISPERIDONE
     Indication: DEPRESSION
     Dosage: 01 TO 02 MG
     Route: 048
     Dates: start: 20071127
  9. RISPERDAL [Suspect]
     Active Substance: RISPERIDONE
     Indication: DEPRESSION
     Route: 048
     Dates: start: 20140429, end: 20140703
  10. RISPERDAL [Suspect]
     Active Substance: RISPERIDONE
     Indication: SCHIZOAFFECTIVE DISORDER
     Dosage: 01 TO 02 MG
     Route: 048
     Dates: start: 20071127
  11. RISPERDAL [Suspect]
     Active Substance: RISPERIDONE
     Indication: DEPRESSION
     Route: 048
     Dates: start: 2014, end: 20150506

REACTIONS (3)
  - Gynaecomastia [Unknown]
  - Galactorrhoea [Unknown]
  - Obesity [Unknown]

NARRATIVE: CASE EVENT DATE: 2006
